FAERS Safety Report 6170406-1 (Version None)
Quarter: 2009Q2

REPORT INFORMATION
  Report Type: 
  Country: None (occurrence: None)
  Receive Date: 20090427
  Receipt Date: 20090427
  Transmission Date: 20091009
  Serious: Yes (Hospitalization)
  Sender: FDA-Public Use
  Company Number: None

PATIENT
  Age: 80 Year
  Sex: Female

DRUGS (9)
  1. CYTOXAN [Suspect]
     Indication: POLYARTERITIS NODOSA
     Dosage: 50MG PO QD
     Route: 048
     Dates: start: 20081101
  2. BACTRIM DS [Suspect]
     Indication: PROPHYLAXIS
     Dosage: 1 TAB PO Q MWF
     Route: 048
     Dates: start: 20081001
  3. RISEDRONATE SODIUM [Concomitant]
  4. DOCUSATE [Concomitant]
  5. CALCIUM [Concomitant]
  6. LANSOPRAZOLE [Concomitant]
  7. METOPROLOL TARTRATE [Concomitant]
  8. PREDNISONE [Concomitant]
  9. SIMVASTATIN [Concomitant]

REACTIONS (4)
  - BURNING SENSATION [None]
  - PRURITUS [None]
  - RASH MACULO-PAPULAR [None]
  - STEVENS-JOHNSON SYNDROME [None]
